FAERS Safety Report 5826712-0 (Version None)
Quarter: 2008Q3

REPORT INFORMATION
  Report Type: 
  Country: None (occurrence: None)
  Receive Date: 20080728
  Receipt Date: 20080728
  Transmission Date: 20090109
  Serious: Yes (Hospitalization, Other)
  Sender: FDA-Public Use
  Company Number: None

PATIENT
  Age: 58 Year
  Sex: Male
  Weight: 107 kg

DRUGS (3)
  1. XOLAIR [Suspect]
     Indication: ASTHMA
     Dosage: 300 MG Q 2 WEEKS SQ
     Route: 058
     Dates: start: 20080301, end: 20080703
  2. ASTELIN [Concomitant]
  3. NASACORT [Concomitant]

REACTIONS (2)
  - GUILLAIN-BARRE SYNDROME [None]
  - NO REACTION ON PREVIOUS EXPOSURE TO DRUG [None]
